FAERS Safety Report 11623401 (Version 1)
Quarter: 2015Q4

REPORT INFORMATION
  Report Type: Spontaneous
  Country: None (occurrence: None)
  Receive Date: 20151009
  Receipt Date: 20151009
  Transmission Date: 20160304
  Serious: Yes (Other)
  Sender: FDA-Public Use
  Company Number: None

PATIENT
  Age: 59 Year
  Sex: Female
  Weight: 69.85 kg

DRUGS (4)
  1. EFTIMOXIN (MOXIFLOXACIN) 400 MG GMP - WHO [Suspect]
     Active Substance: MOXIFLOXACIN
     Indication: INFECTION
     Dosage: 1 PILL
     Route: 048
     Dates: start: 20150929, end: 20151005
  2. CITOPAM [Concomitant]
  3. EFTIMOXIN (MOXIFLOXACIN) 400 MG GMP - WHO [Suspect]
     Active Substance: MOXIFLOXACIN
     Indication: COUGH
     Dosage: 1 PILL
     Route: 048
     Dates: start: 20150929, end: 20151005
  4. LAMICTAL [Concomitant]
     Active Substance: LAMOTRIGINE

REACTIONS (2)
  - Paraesthesia [None]
  - Pain [None]

NARRATIVE: CASE EVENT DATE: 20151008
